FAERS Safety Report 6809889-X (Version None)
Quarter: 2010Q2

REPORT INFORMATION
  Report Type: 
  Country: None (occurrence: None)
  Receive Date: 20100630
  Receipt Date: 20100622
  Transmission Date: 20101027
  Serious: Yes (Hospitalization)
  Sender: FDA-Public Use
  Company Number: JP-SANOFI-AVENTIS-2010SA035884

PATIENT
  Age: 68 Year
  Sex: Male
  Weight: 59 kg

DRUGS (4)
  1. ELPLAT [Suspect]
     Indication: GASTRIC CANCER
     Route: 041
     Dates: start: 20100507, end: 20100507
  2. ELPLAT [Suspect]
     Route: 041
     Dates: start: 20100528
  3. TS-1 [Suspect]
     Indication: GASTRIC CANCER
     Route: 048
     Dates: start: 20100507
  4. TS-1 [Suspect]
     Dates: start: 20100528

REACTIONS (1)
  - SHOCK HAEMORRHAGIC [None]
